FAERS Safety Report 13997384 (Version 2)
Quarter: 2017Q3

REPORT INFORMATION
  Report Type: Spontaneous
  Country: FR (occurrence: FR)
  Receive Date: 20170921
  Receipt Date: 20170921
  Transmission Date: 20171128
  Serious: Yes (Hospitalization)
  Sender: FDA-Public Use
  Company Number: PHHY2017FR134752

PATIENT
  Age: 65 Year
  Sex: Male

DRUGS (19)
  1. ZOPHREN [Suspect]
     Active Substance: ONDANSETRON
     Indication: VOMITING
     Dosage: 8 MG, QD (FOR 3 HOURS)
     Route: 042
     Dates: start: 20170816, end: 20170818
  2. DEXAMETHASONE. [Suspect]
     Active Substance: DEXAMETHASONE
     Dosage: UNK (2ND CYCLE)
     Route: 042
  3. CYTARABINE. [Suspect]
     Active Substance: CYTARABINE
     Dosage: 7200 MG, UNK (3600 MG TWICE IN 1 CYCLE (FOR 3 HOURS))
     Route: 042
     Dates: start: 20170816, end: 20170817
  4. OXALIPLATIN. [Suspect]
     Active Substance: OXALIPLATIN
     Dosage: UNK (2ND CYCLE)
     Route: 042
  5. CYTARABINE. [Suspect]
     Active Substance: CYTARABINE
     Dosage: UNK (2ND CYCLE)
     Route: 042
  6. OXALIPLATIN. [Suspect]
     Active Substance: OXALIPLATIN
     Dosage: 180 MG, ONCE/SINGLE  (1 DF IN 1 CYCLE (FOR 2 HOURS))
     Route: 042
     Dates: start: 20170816, end: 20170816
  7. DEXAMETHASONE. [Suspect]
     Active Substance: DEXAMETHASONE
     Dosage: 40 MG, QD
     Route: 042
     Dates: start: 20170817, end: 20170820
  8. POLARAMINE [Suspect]
     Active Substance: DEXCHLORPHENIRAMINE MALEATE
     Indication: PRODUCT USED FOR UNKNOWN INDICATION
     Dosage: 5 MG, (1 DF IN 1 CYCLE (FOR 1 MINUTE)
     Route: 042
     Dates: end: 20170816
  9. DIAMICRON [Concomitant]
     Active Substance: GLICLAZIDE
     Indication: DIABETES MELLITUS
     Dosage: 180 MG, QD
     Route: 048
  10. CYTARABINE. [Suspect]
     Active Substance: CYTARABINE
     Indication: NON-HODGKIN^S LYMPHOMA
     Dosage: UNK UNK, ONCE/SINGLE
     Route: 042
     Dates: start: 20170613, end: 20170613
  11. OXALIPLATIN. [Suspect]
     Active Substance: OXALIPLATIN
     Indication: NON-HODGKIN^S LYMPHOMA
     Dosage: UNK UNK, ONCE/SINGLE
     Route: 042
     Dates: start: 20170613, end: 20170613
  12. DEXAMETHASONE. [Suspect]
     Active Substance: DEXAMETHASONE
     Indication: NON-HODGKIN^S LYMPHOMA
     Dosage: UNK UNK, ONCE/SINGLE
     Route: 042
     Dates: start: 20170613, end: 20170613
  13. DEXAMETHASONE. [Suspect]
     Active Substance: DEXAMETHASONE
     Dosage: 4 MG, (1 DF IN 1 CYCLE (FOR 1 DAY))
     Route: 042
     Dates: start: 20170816, end: 20170816
  14. PERFALGAN [Suspect]
     Active Substance: ACETAMINOPHEN
     Indication: PRODUCT USED FOR UNKNOWN INDICATION
     Dosage: 1000 MG, (1 DF IN 1 CYCLE (FOR 15 MINUTES))
     Route: 042
     Dates: end: 20170816
  15. LANTUS [Concomitant]
     Active Substance: INSULIN GLARGINE
     Indication: TYPE 2 DIABETES MELLITUS
     Dosage: 12 IU, QD (IN THE EVENING)
     Route: 058
  16. ZOPHREN [Suspect]
     Active Substance: ONDANSETRON
     Indication: VOMITING
     Dosage: UNK (DAY 4)
     Route: 048
  17. MABTHERA [Suspect]
     Active Substance: RITUXIMAB
     Dosage: 680 MG, ONCE/SINGLE (1 DF IN  CYCLE (FOR 1 HOUR AND A HALF))
     Route: 042
     Dates: start: 20170816, end: 20170816
  18. MABTHERA [Suspect]
     Active Substance: RITUXIMAB
     Dosage: UNK (2ND CYCLE)
     Route: 042
  19. MABTHERA [Suspect]
     Active Substance: RITUXIMAB
     Indication: NON-HODGKIN^S LYMPHOMA
     Dosage: UNK UNK, ONCE/SINGLE
     Route: 042
     Dates: start: 20170613, end: 20170613

REACTIONS (2)
  - Hyperthermia [Recovered/Resolved]
  - Chills [Recovered/Resolved]

NARRATIVE: CASE EVENT DATE: 20170816
